FAERS Safety Report 18503689 (Version 1)
Quarter: 2020Q4

REPORT INFORMATION
  Report Type: Spontaneous
  Country: US (occurrence: US)
  Receive Date: 20201113
  Receipt Date: 20201113
  Transmission Date: 20210114
  Serious: Yes (Hospitalization)
  Sender: FDA-Public Use
  Company Number: US-BAUSCH-BL-2020-032609

PATIENT
  Age: 48 Year
  Sex: Female

DRUGS (3)
  1. ISOPROTERENOL. [Suspect]
     Active Substance: ISOPROTERENOL
     Indication: TILT TABLE TEST POSITIVE
     Dosage: 1 MICROGRAM/MIN
     Route: 042
  2. ISOPROTERENOL. [Suspect]
     Active Substance: ISOPROTERENOL
     Dosage: 5 MICROGRAM/MIN
     Route: 042
  3. ISOPROTERENOL. [Suspect]
     Active Substance: ISOPROTERENOL
     Dosage: BETWEEN 3 AND 5 MICROGRAM/MIN
     Route: 042

REACTIONS (2)
  - Arteriospasm coronary [Recovered/Resolved]
  - Electrocardiogram ST segment elevation [Recovered/Resolved]
